FAERS Safety Report 25958876 (Version 1)
Quarter: 2025Q4

REPORT INFORMATION
  Report Type: Report from Study
  Country: US (occurrence: US)
  Receive Date: 20251025
  Receipt Date: 20251025
  Transmission Date: 20260117
  Serious: Yes (Other)
  Sender: ABBVIE
  Company Number: US-ABBVIE-6512043

PATIENT
  Sex: Male

DRUGS (1)
  1. SKYRIZI [Suspect]
     Active Substance: RISANKIZUMAB-RZAA
     Indication: Product used for unknown indication
     Route: 058
     Dates: start: 20240912

REACTIONS (5)
  - Cerebral haemorrhage [Recovering/Resolving]
  - Rib fracture [Recovering/Resolving]
  - Limb reconstructive surgery [Recovering/Resolving]
  - Patella fracture [Recovering/Resolving]
  - Road traffic accident [Unknown]
